FAERS Safety Report 4822574-9 (Version None)
Quarter: 2005Q4

REPORT INFORMATION
  Report Type: 
  Country: None (occurrence: None)
  Receive Date: 20051104
  Receipt Date: 20051028
  Transmission Date: 20060501
  Serious: Yes (Hospitalization)
  Sender: FDA-Public Use
  Company Number: 2005RR-01001

PATIENT
  Age: 7 Year
  Sex: Female

DRUGS (2)
  1. IBUPROFEN [Suspect]
     Indication: PYREXIA
     Dosage: 100 MG, QD,
  2. FLUCLOXACILLIN (FLUCLOXACILLIN) UNKOWN [Suspect]
     Indication: PYREXIA
     Dosage: UNKNOWN

REACTIONS (6)
  - DEHYDRATION [None]
  - HAEMODIALYSIS [None]
  - RENAL CORTICAL NECROSIS [None]
  - RENAL FAILURE CHRONIC [None]
  - RENAL ISCHAEMIA [None]
  - RENAL TUBULAR NECROSIS [None]
